FAERS Safety Report 5252729-3 (Version None)
Quarter: 2007Q1

REPORT INFORMATION
  Report Type: 
  Country: None (occurrence: None)
  Receive Date: 20070301
  Receipt Date: 20061204
  Transmission Date: 20070707
  Serious: No
  Sender: FDA-Public Use
  Company Number: US-GLAXOSMITHKLINE-A0627949A

PATIENT
  Age: 41 Year
  Sex: Female

DRUGS (3)
  1. LAMICTAL [Suspect]
     Indication: DRUG USE FOR UNKNOWN INDICATION
     Dosage: 25MG PER DAY
     Route: 048
     Dates: start: 20061011
  2. ALCOHOL [Suspect]
     Route: 048
  3. MOBIC [Concomitant]
     Dosage: 7.5MG UNKNOWN
     Route: 048

REACTIONS (1)
  - METRORRHAGIA [None]
